FAERS Safety Report 7768111-0 (Version None)
Quarter: 2011Q3

REPORT INFORMATION
  Report Type: 
  Country: None (occurrence: None)
  Receive Date: 20110922
  Receipt Date: 20110916
  Transmission Date: 20111222
  Serious: Yes (Hospitalization)
  Sender: FDA-Public Use
  Company Number: ZA-BRISTOL-MYERS SQUIBB COMPANY-16003741

PATIENT
  Age: 65 Year
  Sex: Male

DRUGS (6)
  1. ASPIRIN [Concomitant]
     Dosage: 1DF:{100MG
  2. BLINDED: SAXAGLIPTIN [Suspect]
     Indication: TYPE 2 DIABETES MELLITUS
     Dosage: INTERRUPTED ON 23AUG2011
     Dates: start: 20110513
  3. GLUCOPHAGE [Suspect]
     Indication: DIABETES MELLITUS
  4. BLINDED: PLACEBO [Suspect]
     Indication: TYPE 2 DIABETES MELLITUS
     Dosage: INTERUUPTED ON 23AUG2011
     Dates: start: 20110513
  5. LISINOPRIL AND HYDROCHLOROTHIAZIDE [Suspect]
  6. GLICLAZIDE [Suspect]
     Indication: DIABETES MELLITUS

REACTIONS (1)
  - PANCREATITIS [None]
